FAERS Safety Report 9423911 (Version 2)
Quarter: 2013Q3

REPORT INFORMATION
  Report Type: Spontaneous
  Country: US (occurrence: US)
  Receive Date: 20130729
  Receipt Date: 20130806
  Transmission Date: 20140515
  Serious: Yes (Hospitalization)
  Sender: FDA-Public Use
  Company Number: US-BIOGENIDEC-2013BI067697

PATIENT
  Age: 56 Year
  Sex: Female
  Weight: 107 kg

DRUGS (5)
  1. TYSABRI [Suspect]
     Indication: MULTIPLE SCLEROSIS
     Route: 042
     Dates: start: 20130321
  2. OPANA ER [Concomitant]
     Indication: ARTHRALGIA
     Route: 048
  3. OPANA ER [Concomitant]
     Indication: SPONDYLITIS
     Route: 048
  4. OXYCODONE [Concomitant]
     Indication: ARTHRALGIA
     Route: 048
  5. OXYCODONE [Concomitant]
     Indication: SPONDYLITIS
     Route: 048

REACTIONS (10)
  - Bladder dysfunction [Not Recovered/Not Resolved]
  - Renal impairment [Not Recovered/Not Resolved]
  - Joint swelling [Recovered/Resolved]
  - Oedema peripheral [Recovered/Resolved]
  - Oedema [Recovered/Resolved]
  - Dyspnoea [Recovered/Resolved]
  - Abdominal discomfort [Unknown]
  - Weight increased [Recovered/Resolved]
  - Weight decreased [Unknown]
  - Fluid retention [Not Recovered/Not Resolved]
